FAERS Safety Report 6134697-5 (Version None)
Quarter: 2009Q1

REPORT INFORMATION
  Report Type: 
  Country: None (occurrence: None)
  Receive Date: 20090327
  Receipt Date: 20090317
  Transmission Date: 20090719
  Serious: Yes (Life-Threatening)
  Sender: FDA-Public Use
  Company Number: PR-TYCO HEALTHCARE/MALLINCKRODT-T200900633

PATIENT
  Age: 40 Year
  Sex: Female
  Weight: 72.562 kg

DRUGS (1)
  1. OPTIRAY 300 [Suspect]
     Dosage: 100 ML, SINGLE
     Route: 042
     Dates: start: 20090304, end: 20090304

REACTIONS (2)
  - COUGH [None]
  - RESPIRATORY DISTRESS [None]
